FAERS Safety Report 21417829 (Version 2)
Quarter: 2022Q4

REPORT INFORMATION
  Report Type: Spontaneous
  Country: CA (occurrence: CA)
  Receive Date: 20221006
  Receipt Date: 20221114
  Transmission Date: 20230113
  Serious: Yes (Death, Other)
  Sender: FDA-Public Use
  Company Number: CA-PFIZER INC-202101409312

PATIENT
  Age: 86 Year
  Sex: Male
  Weight: 69 kg

DRUGS (2)
  1. RUXIENCE [Suspect]
     Active Substance: RITUXIMAB-PVVR
     Indication: Rheumatoid arthritis
     Dosage: 1000 MG FOR ONE DOSE
     Route: 042
     Dates: start: 20220614, end: 20220614
  2. RUXIENCE [Suspect]
     Active Substance: RITUXIMAB-PVVR
     Dosage: 1000 MG, SINGLE (DAY 1 ONLY) X 120 MIN INFUSION - NOT STARTED

REACTIONS (6)
  - Death [Fatal]
  - Weight decreased [Unknown]
  - Off label use [Unknown]
  - Off label use [Unknown]
  - Intentional product use issue [Unknown]
  - Product use issue [Unknown]

NARRATIVE: CASE EVENT DATE: 20220614
